FAERS Safety Report 5968939-3 (Version None)
Quarter: 2008Q4

REPORT INFORMATION
  Report Type: 
  Country: None (occurrence: None)
  Receive Date: 20081125
  Receipt Date: 20081125
  Transmission Date: 20090506
  Serious: Yes (Death)
  Sender: FDA-Public Use
  Company Number: None

PATIENT
  Age: 67 Year
  Sex: Male
  Weight: 159.2126 kg

DRUGS (1)
  1. ISOSORBIDE MONONITRATE [Suspect]
     Dosage: 30 MG MORNING
     Dates: start: 20080909, end: 20081017

REACTIONS (1)
  - DEATH [None]
